FAERS Safety Report 5247066-7 (Version None)
Quarter: 2007Q1

REPORT INFORMATION
  Report Type: 
  Country: None (occurrence: None)
  Receive Date: 20070226
  Receipt Date: 20070216
  Transmission Date: 20070707
  Serious: Yes (Hospitalization, Other)
  Sender: FDA-Public Use
  Company Number: FR-ABBOTT-07P-056-0359524-00

PATIENT
  Age: 58 Year
  Sex: Male

DRUGS (2)
  1. MONONAXY [Suspect]
     Indication: BRONCHITIS
     Route: 048
  2. CARBAMAZEPINE [Interacting]
     Indication: EPILEPSY

REACTIONS (3)
  - DRUG INTERACTION [None]
  - GAIT DISTURBANCE [None]
  - SPEECH DISORDER [None]
